FAERS Safety Report 9515808 (Version 1)
Quarter: 2013Q1

REPORT INFORMATION
  Report Type: Spontaneous
  Country: US (occurrence: None)
  Receive Date: 20130305
  Receipt Date: 20130305
  Transmission Date: 20140127
  Serious: Yes (Other)
  Sender: FDA-Public Use
  Company Number: 163-21880-12102670

PATIENT
  Age: 82 Year
  Sex: Female

DRUGS (7)
  1. REVLIMID [Suspect]
     Indication: MYELODYSPLASTIC SYNDROME
     Dosage: 10 MG, 21 IN 21 D, PO
     Route: 048
     Dates: start: 201106
  2. CHOLESTYRAM (COLESTYRMINE) [Concomitant]
  3. HYDROCODONE/APAP (VICODIN) (TABLETS) [Concomitant]
  4. MECLIZINE (MECLOZINE) (TABLETS) [Concomitant]
  5. ZOLPIDEM (ZOLPIDEM) (TABALETS) [Concomitant]
  6. LOSARTAN (HCT (HYZAAR) (TABLETS) [Concomitant]
  7. LEVOTHYROXIN (LEVOTHYROXINE SODIUM) (TABLETS) [Concomitant]

REACTIONS (2)
  - Diarrhoea [None]
  - Dizziness [None]
